FAERS Safety Report 23640499 (Version 1)
Quarter: 2024Q1

REPORT INFORMATION
  Report Type: Spontaneous
  Country: US (occurrence: US)
  Receive Date: 20240318
  Receipt Date: 20240318
  Transmission Date: 20240409
  Serious: Yes (Hospitalization, Other)
  Sender: FDA-Public Use
  Company Number: US-HALEON-USCH2024013034

PATIENT
  Age: 41 Year
  Sex: Male

DRUGS (1)
  1. ROBITUSSIN HONEY SEVERE COUGH, FLU PLUS SORE THROAT [Suspect]
     Active Substance: ACETAMINOPHEN\DEXTROMETHORPHAN HYDROBROMIDE
     Indication: Product used for unknown indication
     Dosage: UNK
     Dates: start: 202401

REACTIONS (4)
  - Pulmonary oedema [Unknown]
  - Cardiac disorder [Unknown]
  - Recalled product administered [Unknown]
  - Medication error [Unknown]

NARRATIVE: CASE EVENT DATE: 20240101
